FAERS Safety Report 10672313 (Version 3)
Quarter: 2015Q1

REPORT INFORMATION
  Report Type: Spontaneous
  Country: US (occurrence: US)
  Receive Date: 20141223
  Receipt Date: 20150106
  Transmission Date: 20150720
  Serious: Yes (Other)
  Sender: FDA-Public Use
  Company Number: US-ABBVIE-12P-163-0973152-00

PATIENT
  Sex: Female
  Weight: 56.75 kg

DRUGS (4)
  1. SYNTHROID [Suspect]
     Active Substance: LEVOTHYROXINE SODIUM
     Indication: PRODUCT USED FOR UNKNOWN INDICATION
     Route: 065
  2. SIMVASTATIN. [Concomitant]
     Active Substance: SIMVASTATIN
     Indication: PRODUCT USED FOR UNKNOWN INDICATION
  3. SYNTHROID [Suspect]
     Active Substance: LEVOTHYROXINE SODIUM
     Indication: THYROID DISORDER
     Route: 048
     Dates: end: 201409
  4. SYNTHROID [Suspect]
     Active Substance: LEVOTHYROXINE SODIUM
     Route: 048
     Dates: start: 201411

REACTIONS (23)
  - Benign breast neoplasm [Recovered/Resolved]
  - Femur fracture [Recovered/Resolved]
  - Knee arthroplasty [Recovered/Resolved]
  - Arthroscopy [Recovered/Resolved]
  - Blood cholesterol increased [Recovered/Resolved]
  - Fatigue [Not Recovered/Not Resolved]
  - Basal cell carcinoma [Recovered/Resolved]
  - Arthroscopy [Recovered/Resolved]
  - Knee arthroplasty [Recovered/Resolved]
  - Joint adhesion [Recovered/Resolved]
  - Dyspepsia [Not Recovered/Not Resolved]
  - Bladder operation [Recovered/Resolved]
  - Benign breast neoplasm [Recovered/Resolved]
  - Blood thyroid stimulating hormone abnormal [Not Recovered/Not Resolved]
  - Nocturia [Recovered/Resolved]
  - Hysterectomy [Recovered/Resolved]
  - Dental implantation [Recovered/Resolved]
  - Arthroscopy [Recovered/Resolved]
  - Medical device removal [Recovered/Resolved]
  - Basedow^s disease [Recovered/Resolved]
  - Arthritis [Unknown]
  - Weight increased [Unknown]
  - Injury [Recovered/Resolved]

NARRATIVE: CASE EVENT DATE: 1971
